FAERS Safety Report 6734562-6 (Version None)
Quarter: 2010Q2

REPORT INFORMATION
  Report Type: 
  Country: None (occurrence: None)
  Receive Date: 20100520
  Receipt Date: 20100212
  Transmission Date: 20101027
  Serious: No
  Sender: FDA-Public Use
  Company Number: US-ALLERGAN-1001910US

PATIENT
  Sex: Female

DRUGS (1)
  1. SANCTURA XR [Suspect]
     Indication: HYPERTONIC BLADDER
     Dosage: 60 MG, QAM
     Route: 048

REACTIONS (1)
  - DRUG INEFFECTIVE [None]
